FAERS Safety Report 10078382 (Version 2)
Quarter: 2014Q2

REPORT INFORMATION
  Report Type: Spontaneous
  Country: US (occurrence: US)
  Receive Date: 20140415
  Receipt Date: 20140422
  Transmission Date: 20141212
  Serious: Yes (Life-Threatening, Hospitalization, Other)
  Sender: FDA-Public Use
  Company Number: US-ACCORD-023079

PATIENT
  Sex: Male

DRUGS (1)
  1. ANASTROZOLE [Suspect]
     Indication: PRODUCT USED FOR UNKNOWN INDICATION
     Dates: start: 20120412, end: 20130902

REACTIONS (7)
  - Hypotension [Recovered/Resolved]
  - Nausea [Unknown]
  - Blindness [Recovered/Resolved]
  - Loss of consciousness [Recovered/Resolved]
  - Emotional distress [Unknown]
  - Pain [Unknown]
  - Large intestinal haemorrhage [Recovered/Resolved]
